FAERS Safety Report 6067156-9 (Version None)
Quarter: 2009Q1

REPORT INFORMATION
  Report Type: 
  Country: None (occurrence: None)
  Receive Date: 20090205
  Receipt Date: 20090128
  Transmission Date: 20090719
  Serious: Yes (Death, Other)
  Sender: FDA-Public Use
  Company Number: US-BAYER-200912609GPV

PATIENT
  Sex: Male

DRUGS (7)
  1. DIAZEPAM [Suspect]
     Indication: DRUG USE FOR UNKNOWN INDICATION
     Route: 048
     Dates: end: 19730701
  2. CODEINE [Suspect]
     Indication: PAIN
     Route: 030
     Dates: start: 19460101, end: 19760101
  3. CODEINE [Suspect]
     Route: 048
     Dates: start: 19460101, end: 19760101
  4. ASPIRIN [Suspect]
     Indication: PAIN
     Route: 048
     Dates: start: 19460101, end: 19760101
  5. ACETAMINOPHEN [Suspect]
     Indication: PAIN
     Route: 048
     Dates: start: 19460101, end: 19760101
  6. PHENACETIN [Suspect]
     Indication: PAIN
     Route: 048
     Dates: start: 19460101, end: 19760101
  7. SALICYLAMIDE [Suspect]
     Indication: PAIN
     Route: 048
     Dates: start: 19460101, end: 19760101

REACTIONS (10)
  - ANAEMIA [None]
  - CONSTIPATION [None]
  - DYSURIA [None]
  - FALL [None]
  - GASTROINTESTINAL HAEMORRHAGE [None]
  - HAEMORRHOIDS [None]
  - PEPTIC ULCER [None]
  - RECTAL PROLAPSE [None]
  - RENAL FAILURE CHRONIC [None]
  - SEDATION [None]
